FAERS Safety Report 5225790-X (Version None)
Quarter: 2007Q1

REPORT INFORMATION
  Report Type: 
  Country: None (occurrence: None)
  Receive Date: 20070130
  Receipt Date: 20070130
  Transmission Date: 20070707
  Serious: No
  Sender: FDA-Public Use
  Company Number: None

PATIENT
  Sex: Male
  Weight: 89.8122 kg

DRUGS (1)
  1. TAXOL [Suspect]
     Dates: start: 20051015

REACTIONS (3)
  - ACUTE MYOCARDIAL INFARCTION [None]
  - IN-STENT ARTERIAL RESTENOSIS [None]
  - THROMBOSIS IN DEVICE [None]
